FAERS Safety Report 19672235 (Version 4)
Quarter: 2021Q4

REPORT INFORMATION
  Report Type: Spontaneous
  Country: JP (occurrence: JP)
  Receive Date: 20210808
  Receipt Date: 20211006
  Transmission Date: 20220303
  Serious: Yes (Death, Life-Threatening, Other)
  Sender: FDA-Public Use
  Company Number: JP-KYOWAKIRIN-2021AKK013473

PATIENT
  Age: 69 Year
  Sex: Female

DRUGS (10)
  1. PEGFILGRASTIM [Suspect]
     Active Substance: PEGFILGRASTIM
     Indication: Colony stimulating factor therapy
     Dosage: 3.6 MG, QD
     Route: 058
     Dates: start: 20210709, end: 20210709
  2. EPIRUBICIN HYDROCHLORIDE [Suspect]
     Active Substance: EPIRUBICIN HYDROCHLORIDE
     Indication: Breast cancer
     Dosage: 140 MG, QD
     Route: 042
     Dates: start: 20210707, end: 20210707
  3. CYCLOPHOSPHAMIDE [Suspect]
     Active Substance: CYCLOPHOSPHAMIDE
     Indication: Breast cancer
     Dosage: 900 MG, QD
     Route: 042
     Dates: start: 20210707, end: 20210707
  4. FOSAPREPITANT [Concomitant]
     Active Substance: FOSAPREPITANT
     Indication: Breast cancer
     Dosage: 150 MG, QD
     Route: 042
     Dates: start: 20210707, end: 20210707
  5. ALOXI [Concomitant]
     Active Substance: PALONOSETRON HYDROCHLORIDE
     Indication: Breast cancer
     Dosage: 0.75 MG, QD
     Route: 042
     Dates: start: 20210707, end: 20210707
  6. DECADRON (DEXAMETHASONE SODIUM PHOSPHATE) [Concomitant]
     Active Substance: DEXAMETHASONE SODIUM PHOSPHATE
     Indication: Breast cancer
     Dosage: 10 MG, QD
     Route: 042
     Dates: start: 20210707, end: 20210707
  7. OLANZAPINE [Concomitant]
     Active Substance: OLANZAPINE
     Indication: Breast cancer
     Dosage: 5 MG, QD
     Route: 048
     Dates: start: 20210707, end: 20210711
  8. MAGNESIUM OXIDE [Concomitant]
     Active Substance: MAGNESIUM OXIDE
     Indication: Constipation
     Dosage: 660 MG, TID
     Route: 048
     Dates: start: 20210707, end: 20210711
  9. REBAMIPIDE [Concomitant]
     Active Substance: REBAMIPIDE
     Indication: Gastritis prophylaxis
     Dosage: 100 MG, TID
     Route: 048
     Dates: start: 20210707, end: 20210716
  10. COVID-19 VACCINE [Concomitant]
     Indication: COVID-19 prophylaxis
     Dosage: UNK, QD
     Route: 030
     Dates: start: 20210715, end: 20210715

REACTIONS (3)
  - Pneumonia [Fatal]
  - Neutrophil count decreased [Not Recovered/Not Resolved]
  - Colony stimulating factor therapy [Unknown]

NARRATIVE: CASE EVENT DATE: 20210716
